FAERS Safety Report 15770150 (Version 7)
Quarter: 2021Q3

REPORT INFORMATION
  Report Type: Spontaneous
  Country: US (occurrence: US)
  Receive Date: 20181228
  Receipt Date: 20210722
  Transmission Date: 20211014
  Serious: No
  Sender: FDA-Public Use
  Company Number: US-PFIZER INC-2018531528

PATIENT
  Age: 45 Year
  Sex: Female
  Weight: 120.63 kg

DRUGS (3)
  1. LYRICA [Suspect]
     Active Substance: PREGABALIN
     Indication: PAIN
     Dosage: 375 MG, DAILY (TAKE 1 CAPSULE (225 MG) IN PM WITH 150MG DOSE IN AM)
     Route: 048
     Dates: start: 20190115, end: 2019
  2. LYRICA [Suspect]
     Active Substance: PREGABALIN
     Indication: TENDERNESS
     Dosage: 300 MG, DAILY [75 MG 1 CAPSULE IN AM WITH 225 MG DOSE IN EVENING]
     Route: 048
     Dates: start: 20190502
  3. LYRICA [Suspect]
     Active Substance: PREGABALIN
     Indication: FIBROMYALGIA
     Dosage: 225 MG, 2X/DAY
     Route: 048

REACTIONS (1)
  - Somnolence [Not Recovered/Not Resolved]
